FAERS Safety Report 18009782 (Version 3)
Quarter: 2020Q3

REPORT INFORMATION
  Report Type: Spontaneous
  Country: US (occurrence: US)
  Receive Date: 20200710
  Receipt Date: 20200902
  Transmission Date: 20201103
  Serious: Yes (Other)
  Sender: FDA-Public Use
  Company Number: US-BAYER-2020-138157

PATIENT
  Age: 42 Year
  Sex: Female
  Weight: 75.74 kg

DRUGS (8)
  1. MIRENA [Suspect]
     Active Substance: LEVONORGESTREL
     Indication: MENORRHAGIA
     Dosage: 20?G PER DAY, CONTINUOUSLY
     Route: 015
     Dates: start: 20200720
  2. LORAZEPAM. [Concomitant]
     Active Substance: LORAZEPAM
     Route: 048
  3. TRAZODONE [Concomitant]
     Active Substance: TRAZODONE HYDROCHLORIDE
  4. LIDOCAINE NMD [Concomitant]
     Indication: ANALGESIC THERAPY
     Dosage: UNK
     Dates: start: 20200520, end: 20200520
  5. BUSPIRONE [Concomitant]
     Active Substance: BUSPIRONE HYDROCHLORIDE
     Route: 048
  6. MIRENA [Suspect]
     Active Substance: LEVONORGESTREL
     Indication: CONTRACEPTION
     Dosage: 20 ?G PER DAY CONTINUOUS
     Route: 015
     Dates: start: 20200529, end: 20200612
  7. IBUPROFEN. [Concomitant]
     Active Substance: IBUPROFEN
  8. WELLBUTRIN [Concomitant]
     Active Substance: BUPROPION HYDROCHLORIDE
     Route: 048

REACTIONS (12)
  - Feeling hot [Recovered/Resolved]
  - Post procedural discomfort [Recovered/Resolved]
  - Hyperhidrosis [Recovered/Resolved]
  - Post procedural haemorrhage [Recovered/Resolved]
  - Post procedural discomfort [Recovered/Resolved]
  - Ovarian cyst [Recovered/Resolved]
  - Procedural pain [Recovered/Resolved]
  - Embedded device [Recovered/Resolved]
  - Dizziness [Recovered/Resolved]
  - Procedural pain [Recovered/Resolved]
  - Dyspareunia [Recovered/Resolved]
  - Device difficult to use [None]

NARRATIVE: CASE EVENT DATE: 20200529
